FAERS Safety Report 18060700 (Version 1)
Quarter: 2020Q3

REPORT INFORMATION
  Report Type: Report from Study
  Country: US (occurrence: US)
  Receive Date: 20200723
  Receipt Date: 20200723
  Transmission Date: 20201103
  Serious: Yes (Other)
  Sender: FDA-Public Use
  Company Number: US-MYLANLABS-2020M1065897

PATIENT

DRUGS (2)
  1. ALPROSTADIL. [Suspect]
     Active Substance: ALPROSTADIL
     Dosage: 0.01 MICROGRAM/KILOGRAM, QMINUTE
  2. ALPROSTADIL. [Suspect]
     Active Substance: ALPROSTADIL
     Indication: HEART DISEASE CONGENITAL
     Dosage: 0.05 MICROGRAM/KILOGRAM, QMINUTE

REACTIONS (2)
  - Off label use [Unknown]
  - Infantile apnoea [Unknown]
